FAERS Safety Report 14065969 (Version 3)
Quarter: 2018Q1

REPORT INFORMATION
  Report Type: Spontaneous
  Country: US (occurrence: US)
  Receive Date: 20171009
  Receipt Date: 20180316
  Transmission Date: 20180508
  Serious: No
  Sender: FDA-Public Use
  Company Number: US-ASTRAZENECA-2017SF01382

PATIENT
  Age: 28123 Day
  Sex: Male
  Weight: 95.3 kg

DRUGS (6)
  1. TUDORZA PRESSAIR [Suspect]
     Active Substance: ACLIDINIUM BROMIDE
     Indication: LYMPHOMA
     Dosage: 400 MCG; TWO PUFFS TWICE A DAY
     Route: 055
  2. SYMBICORT [Suspect]
     Active Substance: BUDESONIDE\FORMOTEROL FUMARATE DIHYDRATE
     Indication: CHRONIC OBSTRUCTIVE PULMONARY DISEASE
     Dosage: TWO PUFFS TWO TIMES A DAY
     Route: 055
  3. TUDORZA PRESSAIR [Suspect]
     Active Substance: ACLIDINIUM BROMIDE
     Indication: LUNG NEOPLASM MALIGNANT
     Dosage: 400 MCG; TWO PUFFS TWICE A DAY
     Route: 055
  4. SYMBICORT [Suspect]
     Active Substance: BUDESONIDE\FORMOTEROL FUMARATE DIHYDRATE
     Indication: DYSPNOEA
     Dosage: TWO PUFFS TWO TIMES A DAY
     Route: 055
  5. PRORR INHALER HFA [Concomitant]
     Indication: DYSPNOEA
     Dosage: TAKES 5 PUFFS OF HIS FLUTTER VALVE AND THEN USES THE INHALER AND THEN TAKES 5 PUFFS OF HIS FLUTTE...
  6. TUDORZA PRESSAIR [Suspect]
     Active Substance: ACLIDINIUM BROMIDE
     Indication: CHRONIC OBSTRUCTIVE PULMONARY DISEASE
     Dosage: 400 MCG; TWO PUFFS TWICE A DAY
     Route: 055

REACTIONS (10)
  - Respiration abnormal [Unknown]
  - Vomiting [Unknown]
  - Intentional product misuse [Unknown]
  - Off label use [Unknown]
  - Drug dispensing error [Unknown]
  - Haemorrhage [Unknown]
  - Circumstance or information capable of leading to medication error [Unknown]
  - Product use issue [Unknown]
  - Drug dose omission [Unknown]
  - Product quality issue [Unknown]

NARRATIVE: CASE EVENT DATE: 20171004
